FAERS Safety Report 10248237 (Version 1)
Quarter: 2014Q2

REPORT INFORMATION
  Report Type: Spontaneous
  Country: RO (occurrence: RO)
  Receive Date: 20140620
  Receipt Date: 20140620
  Transmission Date: 20141212
  Serious: Yes (Death, Hospitalization, Other)
  Sender: FDA-Public Use
  Company Number: PHHY2014RO071776

PATIENT
  Age: 36 Year
  Sex: Female
  Weight: 41.2 kg

DRUGS (2)
  1. CAPECITABINE [Suspect]
     Indication: ADENOCARCINOMA PANCREAS
     Dosage: 1250 MG/M2, BID
     Route: 048
  2. OXALIPLATIN [Suspect]
     Indication: ADENOCARCINOMA PANCREAS
     Dosage: 150 MG/M2, UNK
     Route: 042

REACTIONS (30)
  - Multi-organ failure [Fatal]
  - Cardiotoxicity [Fatal]
  - Cardiac failure [Fatal]
  - Hepatic failure [Fatal]
  - Jaundice [Unknown]
  - Pancreatic disorder [Fatal]
  - Muscle spasms [Unknown]
  - Body temperature increased [Unknown]
  - Pallor [Unknown]
  - Leukocytosis [Unknown]
  - Enteritis [Unknown]
  - Vomiting [Unknown]
  - Abdominal tenderness [Unknown]
  - Diarrhoea [Unknown]
  - Abdominal pain [Unknown]
  - Gastrointestinal sounds abnormal [Unknown]
  - Pancreatic atrophy [Unknown]
  - Hepatic steatosis [Unknown]
  - Pericarditis [Unknown]
  - Ascites [Unknown]
  - Acute respiratory distress syndrome [Unknown]
  - Myocardial fibrosis [Unknown]
  - Sinus tachycardia [Unknown]
  - Abdominal rigidity [Unknown]
  - Hydrothorax [Unknown]
  - Renal disorder [Unknown]
  - Pancreatitis chronic [Unknown]
  - Hepatitis [Unknown]
  - Thrombocytopenia [Unknown]
  - Anaemia [Unknown]
